FAERS Safety Report 17872730 (Version 1)
Quarter: 2020Q2

REPORT INFORMATION
  Report Type: Spontaneous
  Country: FR (occurrence: FR)
  Receive Date: 20200608
  Receipt Date: 20200608
  Transmission Date: 20200714
  Serious: Yes (Other)
  Sender: FDA-Public Use
  Company Number: FR-MYLANLABS-2020M1054459

PATIENT
  Age: 64 Year
  Sex: Male
  Weight: 80 kg

DRUGS (20)
  1. KALETRA [Suspect]
     Active Substance: LOPINAVIR\RITONAVIR
     Indication: COVID-19 PNEUMONIA
     Dosage: 4 DOSAGE FORM, QD
     Route: 048
     Dates: start: 20200323
  2. CISATRACURIUM MYLAN [Suspect]
     Active Substance: CISATRACURIUM
     Indication: SEDATIVE THERAPY
     Dosage: UNK
     Route: 042
     Dates: start: 20200323
  3. MIDAZOLAM MYLAN [Suspect]
     Active Substance: MIDAZOLAM HYDROCHLORIDE
     Indication: SEDATIVE THERAPY
     Dosage: UNK
     Route: 042
     Dates: start: 20200323
  4. CREON [Suspect]
     Active Substance: PANCRELIPASE AMYLASE\PANCRELIPASE LIPASE\PANCRELIPASE PROTEASE
     Indication: PANCREATIC FAILURE
     Dosage: 2 DOSAGE FORM, QD
     Route: 048
  5. PREDNISOLONE. [Suspect]
     Active Substance: PREDNISOLONE
     Indication: PROPHYLAXIS AGAINST TRANSPLANT REJECTION
     Dosage: 20 MILLIGRAM, QD
     Route: 048
     Dates: start: 20200323, end: 20200323
  6. PIPERACILLIN/TAZOBACTAM MYLAN 2G/250MG, TROCKENSUBSTANZ [Suspect]
     Active Substance: PIPERACILLIN SODIUM\TAZOBACTAM SODIUM
     Indication: SEPTIC SHOCK
     Dosage: 1 DOSAGE FORM, TOTAL
     Route: 042
     Dates: start: 20200326, end: 20200326
  7. CORDARONE [Suspect]
     Active Substance: AMIODARONE HYDROCHLORIDE
     Indication: ATRIAL FIBRILLATION
     Dosage: 1 DOSAGE FORM
     Route: 042
     Dates: start: 20200326, end: 20200326
  8. CELLCEPT [Suspect]
     Active Substance: MYCOPHENOLATE MOFETIL\MYCOPHENOLATE MOFETIL HYDROCHLORIDE
     Indication: PROPHYLAXIS AGAINST TRANSPLANT REJECTION
     Dosage: 1000 MILLIGRAM, QD
     Route: 048
     Dates: start: 20200323
  9. CEFTRIAXONE MYLAN 1 G, POUDRE POUR SOLUTION INJECTABLE [Suspect]
     Active Substance: CEFTRIAXONE
     Indication: COVID-19 PNEUMONIA
     Dosage: 1 DOSAGE FORM, QD
     Route: 042
     Dates: start: 20200321, end: 20200326
  10. LINEZOLIDE KABI [Suspect]
     Active Substance: LINEZOLID
     Indication: SEPTIC SHOCK
     Dosage: 600 MILLIGRAM, TOTAL
     Route: 042
     Dates: start: 20200326, end: 20200326
  11. PANTOPRAZOLE MYLAN [Suspect]
     Active Substance: PANTOPRAZOLE SODIUM
     Indication: PRODUCT USED FOR UNKNOWN INDICATION
     Dosage: UNK
  12. FLUCORTAC [Suspect]
     Active Substance: FLUDROCORTISONE ACETATE
     Indication: PRODUCT SUBSTITUTION
     Dosage: UNK
     Route: 042
     Dates: start: 20200326
  13. TAHOR [Suspect]
     Active Substance: ATORVASTATIN CALCIUM
     Indication: DYSLIPIDAEMIA
     Dosage: 1 DOSAGE FORM, QD
     Route: 048
     Dates: start: 20200323
  14. ROVAMYCINE                         /00074401/ [Suspect]
     Active Substance: SPIRAMYCIN
     Indication: COVID-19 PNEUMONIA
     Dosage: 3 DOSAGE FORM, QD
     Route: 048
     Dates: start: 20200321, end: 20200326
  15. SUFENTANIL MYLAN [Suspect]
     Active Substance: SUFENTANIL
     Indication: SEDATIVE THERAPY
     Route: 042
     Dates: start: 20200323
  16. CALCIPARINE [Suspect]
     Active Substance: HEPARIN CALCIUM
     Indication: THROMBOSIS PROPHYLAXIS
     Dosage: UNK
     Route: 058
     Dates: start: 20200320
  17. HYDROCORTISONE UPJOHN [Suspect]
     Active Substance: HYDROCORTISONE
     Indication: PRODUCT SUBSTITUTION
     Route: 042
     Dates: start: 20200326
  18. NORADRENALINE MYLAN [Suspect]
     Active Substance: NOREPINEPHRINE\NOREPINEPHRINE BITARTRATE
     Indication: SEPSIS
     Dosage: UNK
     Route: 042
     Dates: start: 20200323
  19. KARDEGIC [Suspect]
     Active Substance: ASPIRIN DL-LYSINE
     Indication: PROPHYLAXIS
     Dosage: 1 DOSAGE FORM, QD
     Route: 048
  20. AMIKACINE MYLAN [Suspect]
     Active Substance: AMIKACIN
     Indication: SEPTIC SHOCK
     Dosage: 2.5 GRAM, TOTAL
     Route: 042
     Dates: start: 20200326, end: 20200326

REACTIONS (2)
  - Hypertransaminasaemia [Unknown]
  - Rhabdomyolysis [Unknown]

NARRATIVE: CASE EVENT DATE: 20200326
